FAERS Safety Report 9202872 (Version 1)
Quarter: 2013Q2

REPORT INFORMATION
  Report Type: Spontaneous
  Country: US (occurrence: US)
  Receive Date: 20130402
  Receipt Date: 20130402
  Transmission Date: 20140414
  Serious: No
  Sender: FDA-Public Use
  Company Number: US-009507513-1304USA000454

PATIENT
  Sex: Female

DRUGS (2)
  1. JANUMET XR [Suspect]
     Dosage: STRENGTH: 1000/50, DOSE: 50 MG/1000 MG
     Route: 048
  2. AMARYL [Concomitant]

REACTIONS (1)
  - Flatulence [Recovered/Resolved]
